FAERS Safety Report 13825287 (Version 3)
Quarter: 2017Q3

REPORT INFORMATION
  Report Type: Spontaneous
  Country: US (occurrence: US)
  Receive Date: 20170802
  Receipt Date: 20170901
  Transmission Date: 20171127
  Serious: Yes (Life-Threatening, Other)
  Sender: FDA-Public Use
  Company Number: US-SUN PHARMACEUTICAL INDUSTRIES LTD-2017US-146666

PATIENT
  Age: 56 Year
  Sex: Male

DRUGS (3)
  1. LISINOPRIL. [Suspect]
     Active Substance: LISINOPRIL
     Indication: LEFT VENTRICULAR DYSFUNCTION
  2. LISINOPRIL. [Suspect]
     Active Substance: LISINOPRIL
     Indication: LEFT VENTRICULAR DYSFUNCTION
     Dosage: UNK
     Route: 048
  3. FUROSEMIDE. [Concomitant]
     Active Substance: FUROSEMIDE
     Indication: LEFT VENTRICULAR DYSFUNCTION
     Dosage: UNK
     Route: 048

REACTIONS (8)
  - Cardiac murmur [Unknown]
  - Urine output decreased [Unknown]
  - Jugular vein distension [Unknown]
  - Left ventricle outflow tract obstruction [Recovered/Resolved]
  - Peripheral coldness [Unknown]
  - Condition aggravated [Recovered/Resolved]
  - Heart rate increased [Recovered/Resolved]
  - Blood pressure decreased [Recovered/Resolved]
